FAERS Safety Report 9045816 (Version 1)
Quarter: 2013Q1

REPORT INFORMATION
  Report Type: Report from Study
  Country: US (occurrence: US)
  Receive Date: 20130201
  Receipt Date: 20130201
  Transmission Date: 20140127
  Serious: Yes (Hospitalization)
  Sender: FDA-Public Use
  Company Number: US-ABBOTT-12P-163-1011529-00

PATIENT
  Age: 38 Year
  Sex: Female

DRUGS (7)
  1. HUMIRA [Suspect]
     Indication: PSORIATIC ARTHROPATHY
     Dates: start: 201209
  2. NUCYNTA [Concomitant]
     Indication: ARTHRITIS
     Dosage: 100 MG, TWICE DAILY AND 75 MG, FOUR TIMES DAILY
  3. NUCYNTA [Concomitant]
     Indication: FIBROMYALGIA
  4. NUCYNTA [Concomitant]
     Indication: PAIN
  5. LORAZEPAM [Concomitant]
     Indication: ANXIETY
  6. CYMBALTA [Concomitant]
     Indication: DEPRESSION
     Dosage: 60 MG DAILY
  7. ADDERALL [Concomitant]
     Indication: ATTENTION DEFICIT/HYPERACTIVITY DISORDER

REACTIONS (1)
  - Pneumonia [Recovering/Resolving]
